FAERS Safety Report 16573122 (Version 2)
Quarter: 2019Q4

REPORT INFORMATION
  Report Type: Spontaneous
  Country: CA (occurrence: CA)
  Receive Date: 20190715
  Receipt Date: 20191220
  Transmission Date: 20200122
  Serious: Yes (Life-Threatening, Hospitalization, Other)
  Sender: FDA-Public Use
  Company Number: CA-TEVA-2019-CA-1074647

PATIENT
  Age: 37 Year
  Sex: Female

DRUGS (12)
  1. MORPHINE SULFATE INJECTION 1MG/ML [Interacting]
     Active Substance: MORPHINE SULFATE
     Indication: PRODUCT USED FOR UNKNOWN INDICATION
     Route: 042
  2. DICLOFENAC [Suspect]
     Active Substance: DICLOFENAC
     Indication: PRODUCT USED FOR UNKNOWN INDICATION
     Dosage: 150 MILLIGRAM DAILY;
     Route: 065
  3. HYDROMORPHONE [Interacting]
     Active Substance: HYDROMORPHONE
     Indication: PRODUCT USED FOR UNKNOWN INDICATION
     Route: 065
  4. BUPIVACAINE HYDROCHLORIDE. [Interacting]
     Active Substance: BUPIVACAINE HYDROCHLORIDE
     Indication: PRODUCT USED FOR UNKNOWN INDICATION
     Route: 008
  5. MORPHINE SULFATE INJECTION 1MG/ML [Interacting]
     Active Substance: MORPHINE SULFATE
     Route: 037
  6. NALOXONE [Interacting]
     Active Substance: NALOXONE
     Indication: PRODUCT USED FOR UNKNOWN INDICATION
     Route: 065
  7. FENTANYL CITRATE. [Interacting]
     Active Substance: FENTANYL CITRATE
     Indication: PRODUCT USED FOR UNKNOWN INDICATION
     Route: 037
  8. MORPHINE SULFATE INJECTION 1MG/ML [Interacting]
     Active Substance: MORPHINE SULFATE
     Route: 065
  9. MORPHINE SULFATE INJECTION 1MG/ML [Interacting]
     Active Substance: MORPHINE SULFATE
     Route: 042
  10. ACETAMINOPHEN. [Interacting]
     Active Substance: ACETAMINOPHEN
     Indication: PRODUCT USED FOR UNKNOWN INDICATION
     Dosage: 4 DOSAGE FORMS DAILY;
     Route: 051
  11. KETOROLAC [Interacting]
     Active Substance: KETOROLAC TROMETHAMINE
     Indication: PRODUCT USED FOR UNKNOWN INDICATION
     Route: 042
  12. MORPHINE SULFATE INJECTION 1MG/ML [Interacting]
     Active Substance: MORPHINE SULFATE
     Route: 037

REACTIONS (6)
  - Maternal exposure during pregnancy [Unknown]
  - Unresponsive to stimuli [Unknown]
  - Respiratory rate decreased [Unknown]
  - Blood pressure increased [Unknown]
  - Drug interaction [Unknown]
  - Respiratory depression [Unknown]
